FAERS Safety Report 8295147-6 (Version None)
Quarter: 2012Q2

REPORT INFORMATION
  Report Type: 
  Country: None (occurrence: None)
  Receive Date: 20120418
  Receipt Date: 20120410
  Transmission Date: 20120825
  Serious: Yes (Hospitalization, Other)
  Sender: FDA-Public Use
  Company Number: FR-PFIZER INC-2012060597

PATIENT
  Age: 75 Year
  Sex: Male

DRUGS (7)
  1. ZENTEL [Suspect]
     Indication: TOXOCARIASIS
     Dosage: 800 MG, UNK
     Route: 048
     Dates: start: 20111221, end: 20120104
  2. JANUMET [Concomitant]
     Dosage: 100 / 200 MG, 1X/DAY
     Dates: start: 20120127
  3. PANTOPRAZOLE [Suspect]
     Indication: DYSPHAGIA
     Dosage: 20 MG, UNK
     Route: 048
     Dates: start: 20111202, end: 20111210
  4. EXFORGE [Concomitant]
     Dosage: 1 DF, UNK
     Dates: start: 20120127
  5. PANTOPRAZOLE [Suspect]
     Indication: HELICOBACTER INFECTION
     Dosage: 40 MG, UNK
     Route: 048
     Dates: start: 20120106, end: 20120109
  6. ASPIRIN [Concomitant]
     Dosage: 75 MG, UNK
     Dates: end: 20120127
  7. ACEBUTOLOL [Concomitant]
     Dosage: 200 MG, UNK

REACTIONS (3)
  - VOMITING [None]
  - EOSINOPHILIA [None]
  - TUBULOINTERSTITIAL NEPHRITIS [None]
